FAERS Safety Report 9170519 (Version 1)
Quarter: 2013Q1

REPORT INFORMATION
  Report Type: Spontaneous
  Country: US (occurrence: None)
  Receive Date: 20130315
  Receipt Date: 20130315
  Transmission Date: 20140127
  Serious: Yes (Hospitalization)
  Sender: FDA-Public Use
  Company Number: None

PATIENT
  Age: 90 Year
  Sex: Female
  Weight: 76 kg

DRUGS (6)
  1. DIGOXIN [Suspect]
     Indication: ATRIAL FIBRILLATION
     Dosage: PRIOR TO ADMISSION
     Route: 048
  2. DILTIAZEM CD 360 MG [Concomitant]
  3. DOCUSATE CALCIUM 240  MG [Concomitant]
  4. FUROSEMIDE 20 MG [Concomitant]
  5. OXYCODONE/ACETAMINOPHEN [Concomitant]
  6. KCL [Concomitant]

REACTIONS (6)
  - Pneumonia [None]
  - Unresponsive to stimuli [None]
  - Bradycardia [None]
  - Asthenia [None]
  - Nausea [None]
  - Vomiting [None]
